FAERS Safety Report 5738681-2 (Version None)
Quarter: 2008Q2

REPORT INFORMATION
  Report Type: 
  Country: None (occurrence: None)
  Receive Date: 20080513
  Receipt Date: 20080501
  Transmission Date: 20081010
  Serious: Yes (Death)
  Sender: FDA-Public Use
  Company Number: 2008SP000159

PATIENT
  Age: 85 Year
  Sex: Female
  Weight: 59.87 kg

DRUGS (10)
  1. BROVANA [Suspect]
     Indication: CHRONIC OBSTRUCTIVE PULMONARY DISEASE
     Dosage: 15 UG; INHALATION
     Route: 055
     Dates: start: 20071130
  2. XOPENEX [Suspect]
     Dosage: Q4H; INHALATION
     Route: 055
  3. CORTICOSTEROIDS [Concomitant]
  4. KENALOG [Concomitant]
  5. PREDNISONE TAB [Concomitant]
  6. OXYGEN [Concomitant]
  7. SPIRIVA [Concomitant]
  8. ADVAIR DISKUS 100/50 [Concomitant]
  9. ALBUTEROL [Concomitant]
  10. ZITHROMAX [Concomitant]

REACTIONS (8)
  - ASTHMA [None]
  - BODY TEMPERATURE DECREASED [None]
  - DRUG INEFFECTIVE [None]
  - EAR PAIN [None]
  - INSOMNIA [None]
  - MALAISE [None]
  - RESTLESSNESS [None]
  - TREATMENT NONCOMPLIANCE [None]
